FAERS Safety Report 5199598-8 (Version None)
Quarter: 2007Q1

REPORT INFORMATION
  Report Type: 
  Country: None (occurrence: None)
  Receive Date: 20070102
  Receipt Date: 20070102
  Transmission Date: 20070707
  Serious: Yes (Other)
  Sender: FDA-Public Use
  Company Number: None

PATIENT
  Age: 65 Year
  Sex: Male
  Weight: 83.9154 kg

DRUGS (3)
  1. TRIMIPRAMINE MALEATE [Suspect]
     Indication: ANXIETY
     Dosage: 150 MG ONCE AT BEDTIME PO
     Route: 048
     Dates: start: 20061205, end: 20061227
  2. TRIMIPRAMINE MALEATE [Suspect]
     Indication: DEPRESSION
     Dosage: 150 MG ONCE AT BEDTIME PO
     Route: 048
     Dates: start: 20061205, end: 20061227
  3. TRIMIPRAMINE MALEATE [Suspect]
     Indication: INSOMNIA
     Dosage: 150 MG ONCE AT BEDTIME PO
     Route: 048
     Dates: start: 20061205, end: 20061227

REACTIONS (2)
  - PHARMACEUTICAL PRODUCT COMPLAINT [None]
  - THERAPEUTIC PRODUCT INEFFECTIVE [None]
